FAERS Safety Report 15281263 (Version 1)
Quarter: 2018Q3

REPORT INFORMATION
  Report Type: Spontaneous
  Country: IT (occurrence: IT)
  Receive Date: 20180815
  Receipt Date: 20180815
  Transmission Date: 20181010
  Serious: Yes (Hospitalization)
  Sender: FDA-Public Use
  Company Number: IT-SA-2018SA154366

PATIENT
  Age: 89 Year
  Sex: Male

DRUGS (6)
  1. APIDRA [Suspect]
     Active Substance: INSULIN GLULISINE
     Indication: TYPE 2 DIABETES MELLITUS
     Dosage: 10 IU, QD
     Route: 058
     Dates: start: 20170101, end: 20171029
  2. COUMADIN [Concomitant]
     Active Substance: WARFARIN SODIUM
  3. LANTUS [Suspect]
     Active Substance: INSULIN GLARGINE
     Indication: TYPE 2 DIABETES MELLITUS
     Dosage: 5 IU, QD
     Route: 058
     Dates: start: 20170101, end: 20171029
  4. PEPTAZOL [LANSOPRAZOLE] [Concomitant]
  5. LASIX [Concomitant]
     Active Substance: FUROSEMIDE
  6. BISOPROLOL HEMIFUMARATE [Concomitant]
     Active Substance: BISOPROLOL FUMARATE

REACTIONS (2)
  - Confusional state [Unknown]
  - Fall [Unknown]

NARRATIVE: CASE EVENT DATE: 20171029
